FAERS Safety Report 6261275-X (Version None)
Quarter: 2009Q3

REPORT INFORMATION
  Report Type: 
  Country: None (occurrence: None)
  Receive Date: 20090709
  Receipt Date: 20090630
  Transmission Date: 20100115
  Serious: Yes (Other)
  Sender: FDA-Public Use
  Company Number: US-ROCHE-634703

PATIENT
  Sex: Female
  Weight: 56.7 kg

DRUGS (4)
  1. BONIVA [Suspect]
     Indication: OSTEOPENIA
     Route: 042
     Dates: start: 20081003
  2. CIPRO [Suspect]
     Indication: DRUG USE FOR UNKNOWN INDICATION
     Route: 065
  3. PROTONIX [Concomitant]
     Route: 048
  4. LEXOMYL [Concomitant]
     Indication: DEPRESSION
     Dosage: DRUG LEXOPML
     Route: 048

REACTIONS (5)
  - HALLUCINATION [None]
  - INJECTION SITE ERYTHEMA [None]
  - INJECTION SITE EXTRAVASATION [None]
  - INJECTION SITE IRRITATION [None]
  - INJECTION SITE SWELLING [None]
